FAERS Safety Report 8311472 (Version 4)
Quarter: 2019Q1

REPORT INFORMATION
  Report Type: Spontaneous
  Country: CA (occurrence: CA)
  Receive Date: 20111227
  Receipt Date: 20190220
  Transmission Date: 20190418
  Serious: Yes (Other)
  Sender: FDA-Public Use
  Company Number: CA-PFIZER INC-2011274520

PATIENT
  Age: 55 Year
  Sex: Female
  Weight: 49.89 kg

DRUGS (9)
  1. CARBOPLATIN. [Interacting]
     Active Substance: CARBOPLATIN
     Indication: CERVIX CARCINOMA
     Dosage: UNK
     Route: 042
     Dates: start: 200108
  2. MINOCYCLINE [Interacting]
     Active Substance: MINOCYCLINE\MINOCYCLINE HYDROCHLORIDE
     Dosage: UNK
     Route: 065
     Dates: start: 2011
  3. PHENOBARBITAL. [Suspect]
     Active Substance: PHENOBARBITAL
     Dosage: UNK, 1X/DAY
     Route: 030
  4. BIAXIN [Interacting]
     Active Substance: CLARITHROMYCIN
     Dosage: UNK
     Route: 065
  5. SYNTHROID [Concomitant]
     Active Substance: LEVOTHYROXINE SODIUM
     Indication: HYPOTHYROIDISM
     Dosage: 100 UG, 1X/DAY
     Dates: start: 1980
  6. BACTRIM [Interacting]
     Active Substance: SULFAMETHOXAZOLE\TRIMETHOPRIM
     Dosage: UNK
     Route: 065
  7. DILANTIN [Suspect]
     Active Substance: PHENYTOIN
     Indication: SEIZURE
     Dosage: 300 MG, 5 TIMES A WEEK, AT BEDTIME
     Route: 048
     Dates: start: 197411, end: 1989
  8. DILANTIN [Interacting]
     Active Substance: PHENYTOIN
     Indication: POST-TRAUMATIC EPILEPSY
     Dosage: 275 MG, 2X/WEEK
     Route: 048
     Dates: start: 1989, end: 20111027
  9. PHENOBARBITAL. [Suspect]
     Active Substance: PHENOBARBITAL
     Dosage: AT BEDTIME
     Dates: start: 197411, end: 20111027

REACTIONS (47)
  - Lyme disease [Recovered/Resolved]
  - Feeling abnormal [Recovered/Resolved]
  - Weight decreased [Recovered/Resolved]
  - Mental impairment [Recovered/Resolved]
  - Dysphagia [Recovered/Resolved]
  - Obsessive-compulsive disorder [Recovered/Resolved]
  - Dysarthria [Recovered/Resolved]
  - Pain in extremity [Recovered/Resolved]
  - Blood pressure decreased [Recovered/Resolved]
  - Abnormal sleep-related event [Recovered/Resolved]
  - Anticonvulsant drug level increased [Recovered/Resolved]
  - Sleep-related eating disorder [Recovered/Resolved]
  - Drug effect increased [Unknown]
  - Drop attacks [Recovered/Resolved]
  - Brain injury [Recovered/Resolved]
  - Speech disorder [Recovered/Resolved]
  - Increased appetite [Recovered/Resolved]
  - Cholecystitis acute [Recovered/Resolved]
  - Anticonvulsant drug level decreased [Recovered/Resolved]
  - Personality disorder [Recovered/Resolved]
  - Nystagmus [Recovered/Resolved]
  - Fear [Recovered/Resolved]
  - Somnolence [Recovered/Resolved]
  - Gait disturbance [Recovered/Resolved]
  - Fall [Recovered/Resolved]
  - Inappropriate affect [Recovered/Resolved]
  - Cervix carcinoma [Unknown]
  - Dyskinesia [Recovered/Resolved]
  - Depression [Recovered/Resolved]
  - Hypoaesthesia [Recovered/Resolved]
  - Overdose [Recovered/Resolved]
  - Vibratory sense increased [Recovered/Resolved]
  - Hyporeflexia [Recovered/Resolved]
  - Bradyphrenia [Recovered/Resolved]
  - Syncope [Recovered/Resolved]
  - Fatigue [Recovered/Resolved]
  - Nausea [Recovered/Resolved]
  - Asthenia [Recovered/Resolved]
  - Paraesthesia [Recovered/Resolved]
  - Muscular weakness [Recovered/Resolved]
  - Nervousness [Recovered/Resolved]
  - Crying [Recovered/Resolved]
  - Food intolerance [Recovered/Resolved]
  - Incoherent [Recovered/Resolved]
  - Quality of life decreased [Recovered/Resolved]
  - Drug interaction [Recovered/Resolved]
  - Areflexia [Recovered/Resolved]

NARRATIVE: CASE EVENT DATE: 19881217
